FAERS Safety Report 21548704 (Version 2)
Quarter: 2022Q4

REPORT INFORMATION
  Report Type: Report from Study
  Country: FR (occurrence: FR)
  Receive Date: 20221103
  Receipt Date: 20221107
  Transmission Date: 20230113
  Serious: Yes (Death, Hospitalization)
  Sender: FDA-Public Use
  Company Number: FR-JNJFOC-20220719632

PATIENT
  Age: 76 Year
  Sex: Female
  Weight: 47.3 kg

DRUGS (1)
  1. TECLISTAMAB [Suspect]
     Active Substance: TECLISTAMAB
     Indication: Plasma cell myeloma
     Dosage: MED KIT NO. 705205, 705205
     Route: 058
     Dates: start: 20210720, end: 20220527

REACTIONS (1)
  - Adenoviral hepatitis [Fatal]

NARRATIVE: CASE EVENT DATE: 20220706
